FAERS Safety Report 8211559-0 (Version None)
Quarter: 2012Q1

REPORT INFORMATION
  Report Type: 
  Country: None (occurrence: None)
  Receive Date: 20120315
  Receipt Date: 20120229
  Transmission Date: 20120608
  Serious: Yes (Other)
  Sender: FDA-Public Use
  Company Number: US-SHIONOGI, INC-2012000101

PATIENT

DRUGS (3)
  1. KAPVAY [Suspect]
     Indication: ATTENTION DEFICIT/HYPERACTIVITY DISORDER
     Dosage: 0.1 MG, BID
     Dates: start: 20111101, end: 20111212
  2. CONCERTA [Concomitant]
     Dosage: 36 MG, EVERY MORNING
     Dates: start: 20110201
  3. RITALIN [Concomitant]
     Dosage: 7.5 MG, PRN
     Dates: start: 20110801

REACTIONS (4)
  - HEADACHE [None]
  - SOMNOLENCE [None]
  - SYNCOPE [None]
  - FALL [None]
